FAERS Safety Report 26093565 (Version 1)
Quarter: 2025Q4

REPORT INFORMATION
  Report Type: Spontaneous
  Country: CN (occurrence: CN)
  Receive Date: 20251126
  Receipt Date: 20251126
  Transmission Date: 20260118
  Serious: Yes (Hospitalization, Other)
  Sender: NOVO NORDISK
  Company Number: CN-NOVOPROD-1567235

PATIENT
  Sex: Female

DRUGS (6)
  1. NOVORAPID [Suspect]
     Active Substance: INSULIN ASPART
     Indication: Diabetes mellitus
     Dosage: 10 IU, BID(10U AT NOON AND EVENING)
     Dates: start: 201501
  2. GLICLAZIDE [Suspect]
     Active Substance: GLICLAZIDE
     Indication: Diabetes mellitus
     Dosage: UNK
  3. ACARBOSE [Concomitant]
     Active Substance: ACARBOSE
     Indication: Diabetes mellitus
     Dosage: AT NOON, TWO TABLETS
  4. METFORMIN [Concomitant]
     Active Substance: METFORMIN HYDROCHLORIDE
     Indication: Diabetes mellitus
     Dosage: AT NOON, TWO TABLETS
  5. NIFEDIPINE [Concomitant]
     Active Substance: NIFEDIPINE
     Indication: Product used for unknown indication
     Dosage: UNK
  6. INSULIN GLARGINE [Concomitant]
     Active Substance: INSULIN GLARGINE
     Indication: Hypoglycaemia
     Dosage: UNK

REACTIONS (10)
  - Hyperosmolar state [Recovered/Resolved]
  - Acidosis [Recovered/Resolved]
  - Spinal stenosis [Recovered/Resolved]
  - Intervertebral disc protrusion [Recovered/Resolved]
  - Blood pressure increased [Unknown]
  - Blood glucose increased [Recovered/Resolved]
  - Peripheral venous disease [Unknown]
  - Hunger [Recovered/Resolved]
  - Blood glucose decreased [Recovered/Resolved]
  - Product storage error [Unknown]

NARRATIVE: CASE EVENT DATE: 20251116
